FAERS Safety Report 15483579 (Version 4)
Quarter: 2019Q1

REPORT INFORMATION
  Report Type: Report from Study
  Country: ZA (occurrence: ZA)
  Receive Date: 20181010
  Receipt Date: 20190213
  Transmission Date: 20190417
  Serious: Yes (Hospitalization)
  Sender: FDA-Public Use
  Company Number: ZA-SA-2018SA276445

PATIENT
  Age: 39 Year
  Sex: Male

DRUGS (8)
  1. INSULIN GLARGINE [Suspect]
     Active Substance: INSULIN GLARGINE
     Indication: TYPE 2 DIABETES MELLITUS
     Dosage: 20 U(10 AT MORNING AND 10 AT NIGHT), BID
     Dates: start: 20170101
  2. INSULIN GLARGINE [Suspect]
     Active Substance: INSULIN GLARGINE
     Dosage: 10 U, BID
     Route: 065
     Dates: start: 20181003
  3. TOUJEO [Suspect]
     Active Substance: INSULIN GLARGINE
     Indication: TYPE 2 DIABETES MELLITUS
     Dosage: 24 U, QD
     Route: 065
     Dates: start: 20180929
  4. NOVORAPID [Concomitant]
     Active Substance: INSULIN ASPART
     Dosage: UNK, TID (BEFORE BREAKFAST, BEFORE LUNC AND BEFORE SUPPER)
     Dates: start: 20181025
  5. GLUCOPHAGE [Concomitant]
     Active Substance: METFORMIN HYDROCHLORIDE
     Dosage: 1000 MG, QD (BEFORE SUPPER)
     Dates: start: 20181001
  6. ADCO-SIMVASTATIN [Concomitant]
     Active Substance: SIMVASTATIN
     Dosage: UNK
     Dates: start: 20181029
  7. TOUJEO [Suspect]
     Active Substance: INSULIN GLARGINE
     Dosage: 24 U, HS
     Route: 065
     Dates: start: 20181025
  8. NOVORAPID [Concomitant]
     Active Substance: INSULIN ASPART
     Dosage: 24 U, HS
     Dates: start: 20181025

REACTIONS (5)
  - Headache [Not Recovered/Not Resolved]
  - Off label use [Unknown]
  - Hypertension [Recovered/Resolved]
  - Injection site pain [Not Recovered/Not Resolved]
  - Malaise [Not Recovered/Not Resolved]

NARRATIVE: CASE EVENT DATE: 20170101
